FAERS Safety Report 16526681 (Version 1)
Quarter: 2019Q3

REPORT INFORMATION
  Report Type: Report from Study
  Country: NO (occurrence: NO)
  Receive Date: 20190704
  Receipt Date: 20190704
  Transmission Date: 20191004
  Serious: No
  Sender: FDA-Public Use
  Company Number: NO-BLUE EARTH DIAGNOSTICS LIMITED-BED-000040-2019

PATIENT
  Age: 16 Year
  Sex: Male

DRUGS (1)
  1. AXUMIN [Suspect]
     Active Substance: FLUCICLOVINE F-18
     Indication: POSITRON EMISSION TOMOGRAPHY-MAGNETIC RESONANCE IMAGING
     Dosage: 3.11 ? 0.14MBQ/KG
     Route: 065

REACTIONS (1)
  - Anxiety [Unknown]
